FAERS Safety Report 12926282 (Version 1)
Quarter: 2016Q4

REPORT INFORMATION
  Report Type: Report from Study
  Country: CO (occurrence: CO)
  Receive Date: 20161109
  Receipt Date: 20161109
  Transmission Date: 20170207
  Serious: Yes (Hospitalization, Congenital Anomaly)
  Sender: FDA-Public Use
  Company Number: CO-ACTELION-A-US2015-127922

PATIENT
  Age: 31 Year
  Sex: Female

DRUGS (8)
  1. LITHIUM. [Concomitant]
     Active Substance: LITHIUM
  2. VENTAVIS [Suspect]
     Active Substance: ILOPROST
     Indication: PULMONARY ARTERIAL HYPERTENSION
     Dosage: 1 DF, QID
     Route: 055
     Dates: start: 20140408
  3. AMBRISENTAN [Concomitant]
     Active Substance: AMBRISENTAN
  4. SPIRONOLACTONE. [Concomitant]
     Active Substance: SPIRONOLACTONE
  5. ADEMPAS [Suspect]
     Active Substance: RIOCIGUAT
     Indication: PULMONARY ARTERIAL HYPERTENSION
     Dosage: 2.5 MG, Q8HR
     Route: 048
     Dates: start: 20150316
  6. VENTAVIS [Suspect]
     Active Substance: ILOPROST
     Dosage: 4 DAILY
     Route: 055
     Dates: start: 20160125
  7. FUROSEMIDE. [Concomitant]
     Active Substance: FUROSEMIDE
  8. VENTAVIS [Suspect]
     Active Substance: ILOPROST
     Dosage: 1 DF, QID
     Route: 055
     Dates: start: 20140420

REACTIONS (7)
  - Gastrointestinal disorder [Unknown]
  - Thrombocytopenia [Not Recovered/Not Resolved]
  - Drug prescribing error [Not Recovered/Not Resolved]
  - Product use issue [Unknown]
  - Fatigue [Unknown]
  - Gingival bleeding [Recovered/Resolved]
  - Mucous membrane disorder [Unknown]

NARRATIVE: CASE EVENT DATE: 20140619
